FAERS Safety Report 6540480-9 (Version None)
Quarter: 2010Q1

REPORT INFORMATION
  Report Type: 
  Country: None (occurrence: None)
  Receive Date: 20100118
  Receipt Date: 20100112
  Transmission Date: 20100710
  Serious: Yes (Hospitalization)
  Sender: FDA-Public Use
  Company Number: US-ASTRAZENECA-2005UW13323

PATIENT
  Age: 45 Year
  Sex: Female
  Weight: 97.1 kg

DRUGS (1)
  1. SEROQUEL [Suspect]
     Indication: DEPRESSION
     Route: 048

REACTIONS (8)
  - ABDOMINAL PAIN [None]
  - ANAEMIA [None]
  - BLOOD TRIGLYCERIDES INCREASED [None]
  - HYPERLIPIDAEMIA [None]
  - HYPERTENSION [None]
  - OBESITY [None]
  - PAIN [None]
  - TYPE 2 DIABETES MELLITUS [None]
